FAERS Safety Report 16046495 (Version 1)
Quarter: 2019Q1

REPORT INFORMATION
  Report Type: Report from Study
  Country: US (occurrence: US)
  Receive Date: 20190307
  Receipt Date: 20190307
  Transmission Date: 20190418
  Serious: Yes (Other)
  Sender: FDA-Public Use
  Company Number: US-GILEAD-2019-0394822

PATIENT
  Age: 66 Year
  Sex: Female

DRUGS (1)
  1. RANOLAZINE. [Suspect]
     Active Substance: RANOLAZINE
     Indication: ANGINA PECTORIS
     Dosage: 1000 MG, BID
     Route: 048

REACTIONS (6)
  - Vascular graft [Unknown]
  - Coronary arterial stent insertion [Unknown]
  - Hypercoagulation [Unknown]
  - Aortic stenosis [Unknown]
  - Cardiomyopathy [Unknown]
  - Coronary artery disease [Unknown]
